FAERS Safety Report 7161990-X (Version None)
Quarter: 2010Q4

REPORT INFORMATION
  Report Type: 
  Country: None (occurrence: None)
  Receive Date: 20101215
  Receipt Date: 20100803
  Transmission Date: 20110411
  Serious: Yes (Life-Threatening, Hospitalization)
  Sender: FDA-Public Use
  Company Number: FR-PFIZER INC-2010061243

PATIENT
  Age: 33 Year
  Sex: Female

DRUGS (8)
  1. LYRICA [Suspect]
     Dosage: 200 MG, 2X/DAY
     Route: 048
     Dates: start: 20100309, end: 20100406
  2. METHOTREXATE [Interacting]
     Indication: ACUTE MYELOID LEUKAEMIA
     Dosage: 20 MG, WEEKLY
     Route: 048
     Dates: start: 20090601, end: 20100406
  3. BI-PROFENID [Interacting]
     Indication: SCIATICA
     Dosage: 150 MG, 1X/DAY IN MORNING
     Route: 048
     Dates: start: 20100101, end: 20100406
  4. PURINETHOL [Concomitant]
     Indication: ACUTE MYELOID LEUKAEMIA
     Dosage: 50 MG, UNK
     Route: 048
  5. VESANOID [Concomitant]
     Indication: ACUTE MYELOID LEUKAEMIA
     Dosage: UNK
     Route: 048
  6. PENTACARINAT ^AVENTIS^ [Concomitant]
     Indication: PNEUMOCYSTIS JIROVECI PNEUMONIA
     Dosage: 300 MG, MONTHLY
     Route: 055
     Dates: start: 20090601, end: 20100406
  7. LUTENYL [Concomitant]
     Dosage: 1 DF, 1X/DAY
     Route: 048
     Dates: end: 20100406
  8. VALACYCLOVIR HYDROCHLORIDE [Concomitant]
     Dosage: 500 MG, 1X/DAY
     Route: 048
     Dates: end: 20100406

REACTIONS (5)
  - AGRANULOCYTOSIS [None]
  - LUNG DISORDER [None]
  - OVERDOSE [None]
  - RESPIRATORY DISTRESS [None]
  - TRANSAMINASES INCREASED [None]
